FAERS Safety Report 14219542 (Version 2)
Quarter: 2018Q1

REPORT INFORMATION
  Report Type: Spontaneous
  Country: US (occurrence: US)
  Receive Date: 20171123
  Receipt Date: 20180112
  Transmission Date: 20180508
  Serious: Yes (Other)
  Sender: FDA-Public Use
  Company Number: US-ALLERGAN-1766538US

PATIENT
  Age: 73 Year
  Sex: Female

DRUGS (1)
  1. RESTASIS [Suspect]
     Active Substance: CYCLOSPORINE
     Indication: DRY EYE
     Dosage: 2 GTT, BID
     Route: 047
     Dates: start: 1997

REACTIONS (4)
  - Drug ineffective [Unknown]
  - Eye irritation [Not Recovered/Not Resolved]
  - Eye discharge [Unknown]
  - Retinal detachment [Recovered/Resolved]

NARRATIVE: CASE EVENT DATE: 1997
